FAERS Safety Report 4713744-9 (Version None)
Quarter: 2005Q3

REPORT INFORMATION
  Report Type: 
  Country: None (occurrence: None)
  Receive Date: 20050713
  Receipt Date: 20050620
  Transmission Date: 20060218
  Serious: Yes (Death, Other)
  Sender: FDA-Public Use
  Company Number: US_0501109899

PATIENT

DRUGS (1)
  1. ZYPREXA [Suspect]
     Indication: MENTAL DISORDER
     Dosage: UNK
     Route: 065
     Dates: start: 20020501, end: 20030901

REACTIONS (2)
  - HAEMANGIOMA [None]
  - PITUITARY TUMOUR BENIGN [None]
